FAERS Safety Report 6215367-1 (Version None)
Quarter: 2009Q2

REPORT INFORMATION
  Report Type: 
  Country: None (occurrence: None)
  Receive Date: 20090604
  Receipt Date: 20090514
  Transmission Date: 20091009
  Serious: Yes (Other)
  Sender: FDA-Public Use
  Company Number: PHHY2009CA18356

PATIENT
  Sex: Female

DRUGS (13)
  1. RASILEZ [Suspect]
     Dosage: 150
  2. TARO-WARFARIN [Concomitant]
     Indication: INTERNATIONAL NORMALISED RATIO ABNORMAL
     Dosage: UNK
     Dates: start: 20090320, end: 20090321
  3. METOPROLOL SUCCINATE [Concomitant]
  4. ALDACTONE [Concomitant]
  5. CRESTOR [Concomitant]
  6. NITRO-DUR [Concomitant]
  7. SYNTHROID [Concomitant]
  8. NOVO-SEMIDE [Concomitant]
  9. CARBOCAL D [Concomitant]
  10. RIVASA [Concomitant]
  11. ACCU CHECK AVIVA BANDELETTE [Concomitant]
  12. APO AMIODARONE [Concomitant]
  13. RATIO METFORMIN [Concomitant]

REACTIONS (3)
  - ALOPECIA [None]
  - CARDIAC DISORDER [None]
  - HEART TRANSPLANT [None]
